FAERS Safety Report 8314604-7 (Version None)
Quarter: 2012Q1

REPORT INFORMATION
  Report Type: 
  Country: None (occurrence: None)
  Receive Date: 20120315
  Receipt Date: 20110509
  Transmission Date: 20120608
  Serious: Yes (Hospitalization, Other)
  Sender: FDA-Public Use
  Company Number: PHHY2011US39017

PATIENT
  Age: 45 Year
  Sex: Female
  Weight: 46.7 kg

DRUGS (14)
  1. XANAX [Concomitant]
  2. RESTORIL [Concomitant]
  3. DESYREL [Concomitant]
  4. VITAMIN B12 [Concomitant]
  5. PERCOCET [Concomitant]
  6. ZOLOFT [Concomitant]
  7. DEPAKOTE [Concomitant]
  8. AMANTADINE HCL [Concomitant]
  9. GILENYA [Suspect]
     Indication: MULTIPLE SCLEROSIS
     Dosage: 0.5 MG, QD, ORAL
     Route: 048
     Dates: start: 20110125, end: 20110501
  10. BUSPAR [Concomitant]
  11. ACIDOPHILUS (LACTOBACILLUS ACIDOPHILUS) [Concomitant]
  12. LAMICTAL [Concomitant]
  13. ZYPREXA [Concomitant]
  14. BACLOFEN [Concomitant]

REACTIONS (3)
  - MULTIPLE SCLEROSIS RELAPSE [None]
  - WEIGHT DECREASED [None]
  - MUSCULAR WEAKNESS [None]
